FAERS Safety Report 21323846 (Version 3)
Quarter: 2022Q4

REPORT INFORMATION
  Report Type: Spontaneous
  Country: US (occurrence: US)
  Receive Date: 20220912
  Receipt Date: 20221128
  Transmission Date: 20230112
  Serious: Yes (Other)
  Sender: FDA-Public Use
  Company Number: US-JNJFOC-20220917308

PATIENT
  Age: 4 Decade
  Sex: Female

DRUGS (2)
  1. ELMIRON [Suspect]
     Active Substance: PENTOSAN POLYSULFATE SODIUM
     Indication: Cystitis interstitial
     Route: 048
     Dates: start: 200106, end: 200906
  2. ELMIRON [Suspect]
     Active Substance: PENTOSAN POLYSULFATE SODIUM
     Route: 048
     Dates: end: 202106

REACTIONS (1)
  - Retinal pigmentation [Unknown]

NARRATIVE: CASE EVENT DATE: 20060101
